FAERS Safety Report 6812635-7 (Version None)
Quarter: 2010Q3

REPORT INFORMATION
  Report Type: 
  Country: None (occurrence: None)
  Receive Date: 20100701
  Receipt Date: 20100619
  Transmission Date: 20110219
  Serious: Yes (Hospitalization)
  Sender: FDA-Public Use
  Company Number: US-ROCHE-577924

PATIENT
  Sex: Male
  Weight: 83.7 kg

DRUGS (11)
  1. TOCILIZUMAB [Suspect]
     Indication: RHEUMATOID ARTHRITIS
     Dosage: LAST DOSE PRIOR TO THE SAE GIVEN ON 24 AUG 2006
     Route: 042
     Dates: start: 20060630, end: 20060921
  2. TOCILIZUMAB [Suspect]
     Dosage: LAST DOSE PRIOR TO SAE ON 26 JUNE 2008.
     Route: 042
     Dates: start: 20061006
  3. TOCILIZUMAB [Suspect]
     Route: 042
     Dates: start: 20080403
  4. TOCILIZUMAB [Suspect]
     Route: 042
     Dates: start: 20080430
  5. TOCILIZUMAB [Suspect]
     Route: 042
     Dates: start: 20080529
  6. TOCILIZUMAB [Suspect]
     Route: 042
     Dates: start: 20080626
  7. TOCILIZUMAB [Suspect]
     Dosage: PREVIOUSLY ENROLLED IN WA18063 - DOSE WAS BLINDED
     Route: 042
  8. METHOTREXATE [Concomitant]
     Indication: PRODUCT USED FOR UNKNOWN INDICATION
     Route: 065
     Dates: start: 20020101
  9. PREDNISOLONE [Concomitant]
     Indication: PRODUCT USED FOR UNKNOWN INDICATION
     Route: 065
     Dates: start: 20030527, end: 20060907
  10. FOLIC ACID [Concomitant]
     Dosage: DRUG: FOLATE.
     Dates: start: 20020102
  11. ZOCOR [Concomitant]
     Dates: start: 20000101, end: 20090101

REACTIONS (1)
  - TRANSIENT ISCHAEMIC ATTACK [None]
